FAERS Safety Report 4460869-1 (Version None)
Quarter: 2004Q3

REPORT INFORMATION
  Report Type: 
  Country: None (occurrence: None)
  Receive Date: 20040928
  Receipt Date: 20040601
  Transmission Date: 20050211
  Serious: No
  Sender: FDA-Public Use
  Company Number: US-GLAXOSMITHKLINE-A0512871A

PATIENT
  Age: 71 Year
  Sex: Male

DRUGS (5)
  1. ADVAIR DISKUS 100/50 [Suspect]
     Indication: EMPHYSEMA
     Route: 055
  2. ZOCOR [Concomitant]
  3. ADALAT [Concomitant]
  4. HYDROCHLOROTHIAZIDE [Concomitant]
  5. ASPIRIN [Concomitant]

REACTIONS (1)
  - BLOOD POTASSIUM DECREASED [None]
